FAERS Safety Report 15676993 (Version 5)
Quarter: 2020Q3

REPORT INFORMATION
  Report Type: Spontaneous
  Country: FR (occurrence: FR)
  Receive Date: 20181130
  Receipt Date: 20200904
  Transmission Date: 20201102
  Serious: Yes (Hospitalization)
  Sender: FDA-Public Use
  Company Number: FR-ANIPHARMA-2018-FR-000186

PATIENT
  Age: 71 Year
  Sex: Female

DRUGS (14)
  1. CANDESARTAN CILEXETIL. [Suspect]
     Active Substance: CANDESARTAN CILEXETIL
     Indication: HYPERTENSION
     Dosage: 16 MG DAILY/ DOSE TEXT: UNKNOWN DOSE DAILY
     Route: 048
     Dates: start: 201905
  2. KARDEGIC [Concomitant]
     Active Substance: ASPIRIN DL-LYSINE
     Dosage: 1 DF DAILY / DOSE TEXT: UNKNOWN DOSE DAILY
     Route: 048
  3. BRINTELLIX [Suspect]
     Active Substance: VORTIOXETINE HYDROBROMIDE
     Dosage: 1 DF DAILY
     Route: 048
     Dates: start: 20180905, end: 20181019
  4. BEDELIX [Concomitant]
     Active Substance: MONTMORILLONITE
     Route: 065
  5. ESIDREX [Suspect]
     Active Substance: HYDROCHLOROTHIAZIDE
     Dosage: 12.5 MG DAILY
     Route: 048
     Dates: start: 20181019
  6. LANTUS [Suspect]
     Active Substance: INSULIN GLARGINE
     Dosage: 14 IU DAILY / 1 DF DAILY
     Route: 058
  7. METHOTREXATE. [Concomitant]
     Active Substance: METHOTREXATE
     Route: 065
  8. LERCANIDIPINE [Concomitant]
     Active Substance: LERCANIDIPINE
     Dosage: 10 MG DAILY/120 MG  UNK
     Route: 048
  9. GLUCOPHAGE [Concomitant]
     Active Substance: METFORMIN HYDROCHLORIDE
     Dosage: 1 DF DAILY/UNKNOWN DOSE DAILY / 3 DF DAILY
     Route: 048
  10. ASCORBIC ACID+HESPERIDIN+RUSCUS ACULEATUS [Concomitant]
     Route: 065
  11. DEBRIDAT [Concomitant]
     Active Substance: TRIMEBUTINE MALEATE
     Route: 065
  12. ESOMEPRAZOLE MAGNESIUM. [Suspect]
     Active Substance: ESOMEPRAZOLE MAGNESIUM
     Dosage: 40 MG DAILY
     Route: 048
     Dates: start: 20180123, end: 20181023
  13. PARACETAMOL [Concomitant]
     Active Substance: ACETAMINOPHEN
     Route: 065
  14. EUPRESSYL [Concomitant]
     Active Substance: URAPIDIL
     Dosage: 120 MG DAILY
     Route: 048

REACTIONS (2)
  - Hyponatraemia [Not Recovered/Not Resolved]
  - Inappropriate antidiuretic hormone secretion [Recovered/Resolved]

NARRATIVE: CASE EVENT DATE: 201809
